FAERS Safety Report 17367905 (Version 1)
Quarter: 2020Q1

REPORT INFORMATION
  Report Type: Spontaneous
  Country: US (occurrence: US)
  Receive Date: 20200131
  Receipt Date: 20200131
  Transmission Date: 20200409
  Serious: Yes (Other)
  Sender: FDA-Public Use
  Company Number: None

PATIENT
  Age: 78 Year
  Sex: Female
  Weight: 72.57 kg

DRUGS (4)
  1. SAIZEN [Suspect]
     Active Substance: SOMATROPIN
     Indication: GROWTH HORMONE DEFICIENCY
  2. ARMOUR THYROID [Concomitant]
     Active Substance: THYROID, PORCINE
  3. EASYPOD [Suspect]
     Active Substance: DEVICE
  4. DHEA [Concomitant]
     Active Substance: PRASTERONE

REACTIONS (13)
  - Hypersomnia [None]
  - Malaise [None]
  - Wrong dose [None]
  - Product prescribing error [None]
  - Insulin-like growth factor increased [None]
  - Carpal tunnel syndrome [None]
  - Palpitations [None]
  - Weight increased [None]
  - Device issue [None]
  - Diabetes mellitus [None]
  - Product complaint [None]
  - Device dispensing error [None]
  - Overdose [None]

NARRATIVE: CASE EVENT DATE: 20190106
